FAERS Safety Report 5523689-2 (Version None)
Quarter: 2007Q4

REPORT INFORMATION
  Report Type: 
  Country: None (occurrence: None)
  Receive Date: 20071121
  Receipt Date: 20071116
  Transmission Date: 20080405
  Serious: Yes (Other)
  Sender: FDA-Public Use
  Company Number: PHMT2007CA02279

PATIENT
  Age: 78 Year
  Sex: Female

DRUGS (5)
  1. FEMARA [Suspect]
     Dosage: 2.5 MG, QD
     Route: 048
     Dates: start: 20050101
  2. SYNTHROID [Concomitant]
     Dosage: 0.05 MG, QD
  3. PAROXETINE [Concomitant]
     Indication: HOT FLUSH
     Dosage: 20 MG, QD
     Route: 048
  4. CALCIUM [Concomitant]
  5. NOVOPEN [Concomitant]
     Indication: TOOTH INFECTION
     Dosage: 300 MG, QID
     Route: 048

REACTIONS (3)
  - FALL [None]
  - LOSS OF CONSCIOUSNESS [None]
  - SYNCOPE [None]
